FAERS Safety Report 8546136-5 (Version None)
Quarter: 2012Q3

REPORT INFORMATION
  Report Type: 
  Country: None (occurrence: None)
  Receive Date: 20120727
  Receipt Date: 20120723
  Transmission Date: 20120928
  Serious: Yes (Other)
  Sender: FDA-Public Use
  Company Number: US-009507513-1207USA010278

PATIENT

DRUGS (6)
  1. ALTACE [Suspect]
  2. LANTUS [Suspect]
     Dosage: 10 DF, QD
  3. METFORMIN HYDROCHLORIDE [Suspect]
  4. JANUVIA [Suspect]
     Route: 048
  5. GARLIC [Suspect]
  6. AMARYL [Suspect]

REACTIONS (6)
  - OEDEMA PERIPHERAL [None]
  - SWELLING [None]
  - RASH [None]
  - PRURITUS [None]
  - LIP SWELLING [None]
  - WEIGHT DECREASED [None]
